FAERS Safety Report 24810461 (Version 2)
Quarter: 2025Q1

REPORT INFORMATION
  Report Type: Spontaneous
  Country: CN (occurrence: CN)
  Receive Date: 20250106
  Receipt Date: 20250107
  Transmission Date: 20250409
  Serious: Yes (Life-Threatening, Hospitalization, Other)
  Sender: SANOFI AVENTIS
  Company Number: CN-SA-2025SA000391

PATIENT
  Age: 70 Year
  Sex: Male
  Weight: 68 kg

DRUGS (10)
  1. VALPROATE SODIUM [Suspect]
     Active Substance: VALPROATE SODIUM
     Indication: Dementia
     Dosage: 0.5 G, BID
     Route: 048
     Dates: start: 20241119, end: 20241205
  2. TAMSULOSIN HYDROCHLORIDE [Suspect]
     Active Substance: TAMSULOSIN HYDROCHLORIDE
     Indication: Dementia
     Dosage: 0.2 MG, QD
     Route: 048
     Dates: start: 20241119, end: 20241205
  3. ATORVASTATIN CALCIUM [Suspect]
     Active Substance: ATORVASTATIN CALCIUM
     Indication: Dementia
     Dosage: 20 MG, QD
     Route: 048
     Dates: start: 20241119, end: 20241205
  4. DONEPEZIL HYDROCHLORIDE [Suspect]
     Active Substance: DONEPEZIL HYDROCHLORIDE
     Indication: Dementia
     Dosage: 10 MG, QD
     Route: 048
     Dates: start: 20241119, end: 20241205
  5. MEMANTINE HYDROCHLORIDE [Suspect]
     Active Substance: MEMANTINE HYDROCHLORIDE
     Indication: Dementia
     Dosage: 10 MG, QD
     Route: 048
     Dates: start: 20241119, end: 20241205
  6. QUETIAPINE FUMARATE [Suspect]
     Active Substance: QUETIAPINE FUMARATE
     Indication: Dementia
     Dosage: 0.2 G, QD
     Route: 048
     Dates: start: 20241119, end: 20241125
  7. QUETIAPINE FUMARATE [Suspect]
     Active Substance: QUETIAPINE FUMARATE
     Dosage: 0.15 G, QD
     Route: 048
     Dates: start: 20241125, end: 20241129
  8. QUETIAPINE FUMARATE [Suspect]
     Active Substance: QUETIAPINE FUMARATE
     Indication: Dementia
     Dosage: 0.1 G, QD
     Route: 048
     Dates: start: 20241129, end: 20241205
  9. LACTULOSE [Suspect]
     Active Substance: LACTULOSE
     Indication: Dementia
     Dosage: 15 ML, QD
     Route: 048
     Dates: start: 20241119, end: 20241205
  10. GV-971 [Suspect]
     Active Substance: GV-971
     Indication: Dementia
     Dosage: 450 MG, BID
     Route: 048
     Dates: start: 20241119, end: 20241205

REACTIONS (6)
  - Encephalopathy [Unknown]
  - Pallor [Unknown]
  - Head discomfort [Unknown]
  - Coordination abnormal [Unknown]
  - Dysarthria [Unknown]
  - Altered state of consciousness [Unknown]

NARRATIVE: CASE EVENT DATE: 20241205
